FAERS Safety Report 8275346-X (Version None)
Quarter: 2012Q2

REPORT INFORMATION
  Report Type: 
  Country: None (occurrence: None)
  Receive Date: 20120411
  Receipt Date: 20120330
  Transmission Date: 20120825
  Serious: Yes (Hospitalization)
  Sender: FDA-Public Use
  Company Number: AU-ROCHE-1055872

PATIENT
  Sex: Female

DRUGS (5)
  1. ASPIRIN [Concomitant]
  2. VALIUM [Suspect]
     Indication: PANIC ATTACK
  3. MICARDIS [Concomitant]
  4. VALIUM [Suspect]
     Indication: ANXIETY
  5. VALIUM [Suspect]

REACTIONS (4)
  - INTRACRANIAL ANEURYSM [None]
  - CEREBROVASCULAR ACCIDENT [None]
  - FEELING ABNORMAL [None]
  - NERVOUS SYSTEM DISORDER [None]
